FAERS Safety Report 14567875 (Version 1)
Quarter: 2018Q1

REPORT INFORMATION
  Report Type: Spontaneous
  Country: US (occurrence: US)
  Receive Date: 20180223
  Receipt Date: 20180223
  Transmission Date: 20180509
  Serious: No
  Sender: FDA-Public Use
  Company Number: US-FERRINGPH-2017FE03554

PATIENT
  Age: 11 Year
  Sex: Female
  Weight: 43.84 kg

DRUGS (1)
  1. DESMOPRESSIN [Suspect]
     Active Substance: DESMOPRESSIN
     Indication: BLADDER DISORDER
     Dosage: 1 PILL ON FIRST NIGHT, 2 PILLS ON SECOND NIGHT
     Route: 048
     Dates: start: 201705, end: 201705

REACTIONS (2)
  - Off label use [Recovered/Resolved]
  - Abdominal pain upper [Recovered/Resolved]

NARRATIVE: CASE EVENT DATE: 201705
